FAERS Safety Report 18227869 (Version 5)
Quarter: 2021Q1

REPORT INFORMATION
  Report Type: Spontaneous
  Country: PH (occurrence: PH)
  Receive Date: 20200903
  Receipt Date: 20210211
  Transmission Date: 20210419
  Serious: Yes (Death, Hospitalization)
  Sender: FDA-Public Use
  Company Number: PH-BAYER-2020-185557

PATIENT
  Age: 29 Year
  Sex: Male

DRUGS (1)
  1. NEXAVAR [Suspect]
     Active Substance: SORAFENIB
     Indication: HEPATIC CANCER STAGE IV
     Dosage: UNK
     Dates: start: 202006, end: 202008

REACTIONS (8)
  - Cardiac failure [Fatal]
  - Nausea [Not Recovered/Not Resolved]
  - Vomiting [Not Recovered/Not Resolved]
  - Decreased appetite [Not Recovered/Not Resolved]
  - General physical health deterioration [Fatal]
  - Multiple injuries [Fatal]
  - Weight decreased [Not Recovered/Not Resolved]
  - Hepatic cancer stage IV [Fatal]

NARRATIVE: CASE EVENT DATE: 202006
